FAERS Safety Report 17463336 (Version 6)
Quarter: 2024Q2

REPORT INFORMATION
  Report Type: Spontaneous
  Country: US (occurrence: US)
  Receive Date: 20200226
  Receipt Date: 20240614
  Transmission Date: 20240715
  Serious: No
  Sender: FDA-Public Use
  Company Number: US-BIOGEN-2019BI00739647

PATIENT
  Age: 48 Year
  Sex: Female

DRUGS (3)
  1. TECFIDERA [Suspect]
     Active Substance: DIMETHYL FUMARATE
     Indication: Multiple sclerosis
     Dosage: STARTING DOSE
     Route: 050
     Dates: start: 20190429, end: 20190505
  2. TECFIDERA [Suspect]
     Active Substance: DIMETHYL FUMARATE
     Dosage: MAINTENANCE DOSE
     Route: 050
     Dates: start: 20190506
  3. PRIMIDONE [Concomitant]
     Active Substance: PRIMIDONE
     Indication: Seizure
     Route: 050
     Dates: start: 2019

REACTIONS (19)
  - Product dose omission issue [Unknown]
  - Inappropriate schedule of product administration [Unknown]
  - Intentional product misuse [Recovered/Resolved]
  - Bronchitis [Not Recovered/Not Resolved]
  - Influenza [Not Recovered/Not Resolved]
  - Headache [Not Recovered/Not Resolved]
  - Abdominal discomfort [Not Recovered/Not Resolved]
  - Dysphagia [Not Recovered/Not Resolved]
  - Rotator cuff syndrome [Unknown]
  - Gastrointestinal disorder [Recovered/Resolved]
  - Fall [Recovered/Resolved]
  - Gait inability [Recovered/Resolved]
  - Aphasia [Recovered/Resolved]
  - Feeling hot [Unknown]
  - Abdominal pain [Unknown]
  - Diarrhoea [Recovered/Resolved]
  - Flushing [Recovered/Resolved]
  - Pruritus [Recovered/Resolved]
  - Hot flush [Recovered/Resolved]

NARRATIVE: CASE EVENT DATE: 20190429
